FAERS Safety Report 10143912 (Version 2)
Quarter: 2014Q2

REPORT INFORMATION
  Report Type: Spontaneous
  Country: US (occurrence: US)
  Receive Date: 20140430
  Receipt Date: 20140630
  Transmission Date: 20141212
  Serious: Yes (Hospitalization)
  Sender: FDA-Public Use
  Company Number: US-BAYER-2014-062938

PATIENT
  Age: 20 Year
  Sex: Female
  Weight: 61.22 kg

DRUGS (10)
  1. YAZ [Suspect]
     Indication: ACNE
     Dosage: UNK
     Dates: start: 200710, end: 200804
  2. YAZ [Suspect]
     Indication: MENSTRUATION IRREGULAR
  3. YASMIN [Suspect]
  4. ZOLOFT [Concomitant]
     Indication: ANXIETY
     Dosage: 50 MG DAILY TO 125 MG DAILY
     Route: 048
     Dates: start: 2006, end: 2010
  5. ATORVASTATIN [Concomitant]
  6. DORYX [Concomitant]
     Dosage: 75 MG, UNK
  7. TAMIFLU [Concomitant]
     Dosage: 75 MG, UNK
  8. AZITHROMYCIN [Concomitant]
     Dosage: 250 MG, UNK
  9. ZOCOR [Concomitant]
  10. ECOTRIN [Concomitant]

REACTIONS (10)
  - Cerebrovascular accident [None]
  - Injury [None]
  - Pain [None]
  - Emotional distress [None]
  - Depression [None]
  - Fear of death [None]
  - Nervousness [None]
  - VIIth nerve paralysis [None]
  - Hemiparesis [None]
  - Mental disorder [None]
